FAERS Safety Report 23910374 (Version 2)
Quarter: 2024Q3

REPORT INFORMATION
  Report Type: Spontaneous
  Country: US (occurrence: US)
  Receive Date: 20240528
  Receipt Date: 20240822
  Transmission Date: 20241017
  Serious: No
  Sender: AVADEL CNS PHARMA
  Company Number: US-AVADEL CNS PHARMACEUTICALS, LLC-2024AVA00634

PATIENT
  Sex: Female
  Weight: 54.422 kg

DRUGS (18)
  1. LUMRYZ [Suspect]
     Active Substance: SODIUM OXYBATE
     Indication: Narcolepsy
     Dosage: 4.5 G
     Route: 048
     Dates: start: 2024, end: 20240414
  2. LUMRYZ [Suspect]
     Active Substance: SODIUM OXYBATE
     Indication: Narcolepsy
     Dosage: 6 G, ONCE NIGHTLY
     Route: 048
     Dates: start: 20240415
  3. HYRIMOZ [Concomitant]
     Active Substance: ADALIMUMAB-ADAZ
     Dosage: UNK
  4. WELLBUTRIN [Concomitant]
     Active Substance: BUPROPION HYDROCHLORIDE
     Dosage: 300 MG, 1X/DAY IN THE MORNING
  5. VITAMIN A [Concomitant]
     Active Substance: VITAMIN A
     Dosage: 3000 ?G, 1X/DAY IN THE MORNING
  6. UBRELVY [Concomitant]
     Active Substance: UBROGEPANT
     Dosage: 100 MG, AS NEEDED
  7. SPIRONOLACTONE [Concomitant]
     Active Substance: SPIRONOLACTONE
     Dosage: 100 MG, 1X/DAY AT NIGHT
  8. PROZAC [Concomitant]
     Active Substance: FLUOXETINE HYDROCHLORIDE
     Dosage: 40 MG IN THE MORNING, 20 MG AT NIGHT
  9. NALTREXONE [Concomitant]
     Active Substance: NALTREXONE
     Dosage: 4.5 MG, 1X/DAY IN THE MORNING
  10. METHOTREXATE [Concomitant]
     Active Substance: METHOTREXATE
     Dosage: 15 MG, 1X/WEEK AT NIGHT
     Route: 048
  11. MEDROXYPROGESTERONE [Concomitant]
     Active Substance: MEDROXYPROGESTERONE
     Dosage: 10 MG, 1X/DAY IN THE MORNING FOR THE FIRST 10 DAYS OF EVERY MONTH
  12. ZEAXANTHIN [Concomitant]
     Active Substance: ZEAXANTHIN
     Dosage: 6 MG
  13. IRON [Concomitant]
     Active Substance: IRON
     Dosage: 220 MG, EVERY OTHER DAY IN THE MORNING
  14. HUMIRA [Concomitant]
     Active Substance: ADALIMUMAB
     Dosage: 40 MG, EVERY 2 WEEKS
  15. FOLIC ACID [Concomitant]
     Active Substance: FOLIC ACID
     Dosage: 1 MG, 1X/DAY AT NIGHT
  16. CELEBREX [Concomitant]
     Active Substance: CELECOXIB
     Dosage: 100 MG, EVERY 3 DAYS IN THE MORNING
  17. ARMODAFINIL [Concomitant]
     Active Substance: ARMODAFINIL
     Dosage: 200 MG, 1X/DAY IN THE MORNING
  18. GUANFACINE [Concomitant]
     Active Substance: GUANFACINE
     Dosage: 1 MG

REACTIONS (5)
  - Malaise [Unknown]
  - Dizziness [Recovered/Resolved]
  - Vomiting [Recovered/Resolved]
  - Nausea [Recovered/Resolved]
  - Paraesthesia [Not Recovered/Not Resolved]

NARRATIVE: CASE EVENT DATE: 20240101
